FAERS Safety Report 12167318 (Version 2)
Quarter: 2016Q2

REPORT INFORMATION
  Report Type: Spontaneous
  Country: IT (occurrence: IT)
  Receive Date: 20160310
  Receipt Date: 20160404
  Transmission Date: 20160815
  Serious: Yes (Hospitalization)
  Sender: FDA-Public Use
  Company Number: IT-ROCHE-1723690

PATIENT
  Age: 87 Year
  Sex: Female

DRUGS (8)
  1. LANTUS [Concomitant]
     Active Substance: INSULIN GLARGINE
  2. APIDRA [Concomitant]
     Active Substance: INSULIN GLULISINE
  3. TRIATEC (ITALY) [Concomitant]
     Active Substance: RAMIPRIL
  4. PEPTAZOL (ITALY) [Concomitant]
  5. COUMADIN [Concomitant]
     Active Substance: WARFARIN SODIUM
  6. ROCEFIN [Suspect]
     Active Substance: CEFTRIAXONE SODIUM
     Indication: ANTIBIOTIC THERAPY
     Route: 042
  7. LASIX [Concomitant]
     Active Substance: FUROSEMIDE
  8. KANRENOL [Concomitant]
     Active Substance: CANRENOATE POTASSIUM

REACTIONS (4)
  - Cough [Unknown]
  - Acute respiratory failure [Unknown]
  - Dyspnoea [Unknown]
  - Sputum retention [Unknown]

NARRATIVE: CASE EVENT DATE: 20151021
